FAERS Safety Report 18248087 (Version 1)
Quarter: 2020Q3

REPORT INFORMATION
  Report Type: Spontaneous
  Country: US (occurrence: US)
  Receive Date: 20200909
  Receipt Date: 20200909
  Transmission Date: 20201103
  Serious: No
  Sender: FDA-Public Use
  Company Number: US-PERRIGO-20US009076

PATIENT
  Age: 30 Year
  Sex: Female
  Weight: 96.6 kg

DRUGS (3)
  1. ADVAIR HFA [Concomitant]
     Active Substance: FLUTICASONE PROPIONATE\SALMETEROL XINAFOATE
     Dosage: UNKNOWN, TID
     Route: 055
     Dates: start: 20200617, end: 20200617
  2. ALBUTEROL SULFATE. [Suspect]
     Active Substance: ALBUTEROL SULFATE
     Indication: ASTHMA
     Dosage: 180 MCG, PRN
     Route: 055
     Dates: start: 20200615, end: 20200616
  3. ADVAIR HFA [Concomitant]
     Active Substance: FLUTICASONE PROPIONATE\SALMETEROL XINAFOATE
     Indication: ASTHMA
     Dosage: UNKNOWN, BID
     Route: 055

REACTIONS (1)
  - Productive cough [Recovered/Resolved]

NARRATIVE: CASE EVENT DATE: 20200617
